FAERS Safety Report 18443202 (Version 1)
Quarter: 2020Q4

REPORT INFORMATION
  Report Type: Other
  Country: CA (occurrence: CA)
  Receive Date: 20201030
  Receipt Date: 20201030
  Transmission Date: 20210114
  Serious: Yes (Other)
  Sender: FDA-Public Use
  Company Number: CA-CELLTRION INC.-2020CA029607

PATIENT

DRUGS (26)
  1. MYCOPHENOLATE MOFETIL. [Suspect]
     Active Substance: MYCOPHENOLATE MOFETIL
     Indication: SYSTEMIC SCLERODERMA
     Dosage: 750 MILLIGRAM, 2 EVERY 1 DAY
     Route: 065
  2. LASIX [Concomitant]
     Active Substance: FUROSEMIDE
  3. LYRICA [Concomitant]
     Active Substance: PREGABALIN
  4. PREGABALIN. [Concomitant]
     Active Substance: PREGABALIN
  5. SENOKOT [Concomitant]
     Active Substance: SENNOSIDES
  6. VENTOLIN [Concomitant]
     Active Substance: ALBUTEROL SULFATE
  7. MYCOPHENOLATE MOFETIL. [Suspect]
     Active Substance: MYCOPHENOLATE MOFETIL
     Dosage: 1.5 GRAM, 2 EVERY 1 DAY
     Route: 065
  8. ATORVASTATIN [Concomitant]
     Active Substance: ATORVASTATIN
  9. CARDIZEM CD [Concomitant]
     Active Substance: DILTIAZEM HYDROCHLORIDE
  10. CIALIS [Concomitant]
     Active Substance: TADALAFIL
  11. IRON [Concomitant]
     Active Substance: IRON
  12. RITUXIMAB (UNKNOWN) [Suspect]
     Active Substance: RITUXIMAB
     Indication: SYSTEMIC SCLERODERMA
     Dosage: 1000 MILLIGRAM, 1 EVERY 14 DAYS
     Route: 041
  13. BOTULINUM TOXIN TYPE A [Concomitant]
     Active Substance: BOTULINUM TOXIN TYPE A
  14. DOMPERIDONE [Concomitant]
     Active Substance: DOMPERIDONE
  15. METHYLPREDNISOLONE SODIUM SUCCINATE. [Concomitant]
     Active Substance: METHYLPREDNISOLONE SODIUM SUCCINATE
  16. PERINDOPRIL [Concomitant]
     Active Substance: PERINDOPRIL
  17. SALMETEROL XINAFOATE [Concomitant]
     Active Substance: SALMETEROL XINAFOATE
  18. SPIRIVA [Concomitant]
     Active Substance: TIOTROPIUM BROMIDE MONOHYDRATE
  19. COLACE [Concomitant]
     Active Substance: DOCUSATE SODIUM
  20. MACROGOL [Concomitant]
     Active Substance: POLYETHYLENE GLYCOLS
  21. MOTILIUM [Concomitant]
     Active Substance: DOMPERIDONE
  22. BENADRYL [Concomitant]
     Active Substance: DIPHENHYDRAMINE HYDROCHLORIDE
  23. TYLENOL [Concomitant]
     Active Substance: ACETAMINOPHEN
  24. ACETYLSALICYLIC ACID [Concomitant]
     Active Substance: ASPIRIN
  25. PANTOLOC [PANTOPRAZOLE] [Concomitant]
     Active Substance: PANTOPRAZOLE SODIUM
  26. ZOLEDRONIC ACID [Concomitant]
     Active Substance: ZOLEDRONIC ACID

REACTIONS (5)
  - Arthropathy [Not Recovered/Not Resolved]
  - Oxygen saturation decreased [Not Recovered/Not Resolved]
  - Cough [Not Recovered/Not Resolved]
  - Off label use [Not Recovered/Not Resolved]
  - Intentional product use issue [Not Recovered/Not Resolved]
